FAERS Safety Report 15016023 (Version 2)
Quarter: 2018Q2

REPORT INFORMATION
  Report Type: Spontaneous
  Country: BE (occurrence: BE)
  Receive Date: 20180615
  Receipt Date: 20180615
  Transmission Date: 20180711
  Serious: Yes (Life-Threatening)
  Sender: FDA-Public Use
  Company Number: PHHY2016BE067864

PATIENT
  Age: 57 Year
  Sex: Female

DRUGS (23)
  1. BACTRIM [Suspect]
     Active Substance: SULFAMETHOXAZOLE\TRIMETHOPRIM
     Indication: INFECTION PROPHYLAXIS
     Dosage: 80 MG, QOD
     Route: 065
  2. SIMULECT [Suspect]
     Active Substance: BASILIXIMAB
     Indication: IMMUNOSUPPRESSANT DRUG THERAPY
     Dosage: UNK
     Route: 065
  3. SIMULECT [Suspect]
     Active Substance: BASILIXIMAB
     Indication: RENAL TRANSPLANT
     Dosage: 20 MG, UNK
     Route: 065
  4. IMURAN [Suspect]
     Active Substance: AZATHIOPRINE
     Indication: INTESTINAL TRANSPLANT
  5. TACROLIMUS. [Suspect]
     Active Substance: TACROLIMUS
     Indication: RENAL TRANSPLANT
     Route: 065
  6. TAZOCIN [Suspect]
     Active Substance: PIPERACILLIN SODIUM\TAZOBACTAM SODIUM
     Indication: INFECTION PROPHYLAXIS
  7. DIFLUCAN [Suspect]
     Active Substance: FLUCONAZOLE
     Indication: INFECTION PROPHYLAXIS
     Dosage: 6 MG, QD (2 DOSES OF 3 MG/DAY )
     Route: 065
  8. IVEGAM CMV [Suspect]
     Active Substance: HUMAN CYTOMEGALOVIRUS IMMUNE GLOBULIN
     Indication: INFECTION PROPHYLAXIS
     Dosage: 1 ML/KG, UNK
     Route: 065
  9. DIPEPTIVEN [Concomitant]
     Active Substance: ALANYL GLUTAMINE
     Indication: PRODUCT USED FOR UNKNOWN INDICATION
     Route: 042
  10. TOBRAMYCINE [Concomitant]
     Active Substance: TOBRAMYCIN SULFATE
     Indication: THERAPEUTIC PROCEDURE
     Route: 065
  11. IMURAN [Suspect]
     Active Substance: AZATHIOPRINE
     Indication: IMMUNOSUPPRESSANT DRUG THERAPY
  12. TAZOCIN [Suspect]
     Active Substance: PIPERACILLIN SODIUM\TAZOBACTAM SODIUM
     Indication: INFECTION PROPHYLAXIS
     Dosage: 12 G, QD (3 DOSES OF 4G/DAY)
     Route: 065
  13. NYSTATINE [Concomitant]
     Indication: THERAPEUTIC PROCEDURE
     Dosage: 5 ML, UNK
     Route: 065
  14. ALITRAQ [Concomitant]
     Indication: PRODUCT USED FOR UNKNOWN INDICATION
     Dosage: 76 G, ONCE DAILY (ENTERALLY)
     Route: 050
  15. REMICADE [Concomitant]
     Active Substance: INFLIXIMAB
     Indication: PRODUCT USED FOR UNKNOWN INDICATION
     Route: 065
  16. TACROLIMUS. [Suspect]
     Active Substance: TACROLIMUS
     Indication: INTESTINAL TRANSPLANT
  17. TACROLIMUS. [Suspect]
     Active Substance: TACROLIMUS
     Indication: IMMUNOSUPPRESSANT DRUG THERAPY
  18. CYMEVENE [Suspect]
     Active Substance: GANCICLOVIR
     Indication: INFECTION PROPHYLAXIS
     Dosage: 10 MG/KG, QD (2 DOSES OF 5 MG/KG PER DAY)
     Route: 065
  19. METHYLPREDNISOL SODIUM SUCCINATE [Suspect]
     Active Substance: METHYLPREDNISOLONE SODIUM SUCCINATE
     Indication: IMMUNOSUPPRESSION
     Dosage: 20 MG, BID
     Route: 065
  20. SIMULECT [Suspect]
     Active Substance: BASILIXIMAB
     Indication: INTESTINAL TRANSPLANT
     Dosage: 20 MG, UNKNOWN FREQ. (DAYS 1 AND 4)
     Route: 065
  21. IMURAN [Suspect]
     Active Substance: AZATHIOPRINE
     Indication: RENAL TRANSPLANT
     Dosage: 1 MG/KG, QD (0.5-1MG/KG/DAY)
     Route: 065
  22. AMBISOME [Suspect]
     Active Substance: AMPHOTERICIN B
     Indication: INFECTION PROPHYLAXIS
     Dosage: 3 MG/KG, QD
     Route: 065
  23. COLISTIN [Concomitant]
     Active Substance: COLISTIN
     Indication: THERAPEUTIC PROCEDURE
     Dosage: UNK (2 X 10^6 UNITS, UNKNOWN FREQ.)
     Route: 065

REACTIONS (2)
  - Off label use [Unknown]
  - Candida infection [Recovered/Resolved]
